FAERS Safety Report 25175472 (Version 1)
Quarter: 2025Q2

REPORT INFORMATION
  Report Type: Report from Study
  Country: CA (occurrence: CA)
  Receive Date: 20250408
  Receipt Date: 20250408
  Transmission Date: 20250717
  Serious: Yes (Disabling, Other)
  Sender: VERITY PHARMACEUTICALS
  Company Number: CA-VER-202500069

PATIENT
  Age: 67 Year
  Sex: Male

DRUGS (2)
  1. TRELSTAR [Suspect]
     Active Substance: TRIPTORELIN PAMOATE
     Indication: Prostate cancer
     Dosage: POWDER FOR PROLONGED-RELEASE SUSPENSION FOR INJECT
     Route: 030
     Dates: start: 20240917, end: 20240917
  2. TRELSTAR [Suspect]
     Active Substance: TRIPTORELIN PAMOATE
     Indication: Prostate cancer
     Dosage: POWDER FOR PROLONGED-RELEASE SUSPENSION FOR INJECT; BATCH - 17144
     Route: 030
     Dates: start: 20250317, end: 20250317

REACTIONS (1)
  - Brain neoplasm [Not Recovered/Not Resolved]
